FAERS Safety Report 8853054 (Version 2)
Quarter: 2014Q3

REPORT INFORMATION
  Report Type: Report from Study
  Country: US (occurrence: US)
  Receive Date: 20121022
  Receipt Date: 20140822
  Transmission Date: 20150326
  Serious: Yes (Hospitalization, Other)
  Sender: FDA-Public Use
  Company Number: US-ROCHE-1103448

PATIENT
  Sex: Female
  Weight: 79 kg

DRUGS (17)
  1. WELLBUTRIN SR [Concomitant]
     Active Substance: BUPROPION HYDROCHLORIDE
     Route: 048
  2. CELEBREX [Concomitant]
     Active Substance: CELECOXIB
     Route: 048
  3. MEGACE SUSPENSION [Concomitant]
     Route: 048
  4. DIFLUCAN [Concomitant]
     Active Substance: FLUCONAZOLE
     Route: 048
  5. HERCEPTIN [Suspect]
     Active Substance: TRASTUZUMAB
     Indication: BREAST CANCER FEMALE
     Route: 042
     Dates: start: 20061121
  6. TAXOL [Concomitant]
     Active Substance: PACLITAXEL
     Route: 065
     Dates: start: 20060213
  7. PROZAC [Concomitant]
     Active Substance: FLUOXETINE HYDROCHLORIDE
     Route: 048
  8. NEXIUM [Concomitant]
     Active Substance: ESOMEPRAZOLE MAGNESIUM
     Route: 048
  9. PREDNISONE. [Concomitant]
     Active Substance: PREDNISONE
     Dosage: EVERY MORNING WITH FOOD
     Route: 065
  10. ZOMETA [Concomitant]
     Active Substance: ZOLEDRONIC ACID
  11. LAPATINIB [Concomitant]
     Active Substance: LAPATINIB
     Route: 065
     Dates: start: 20070417
  12. TRAMADOL [Concomitant]
     Active Substance: TRAMADOL
     Route: 048
  13. AVASTIN [Suspect]
     Active Substance: BEVACIZUMAB
     Indication: BREAST CANCER FEMALE
     Route: 042
     Dates: start: 20060213, end: 20060627
  14. XELODA [Suspect]
     Active Substance: CAPECITABINE
     Indication: PRODUCT USED FOR UNKNOWN INDICATION
     Route: 065
     Dates: start: 20061121
  15. XANAX [Concomitant]
     Active Substance: ALPRAZOLAM
     Route: 048
  16. FENTANYL TRANSDERMAL SYSTEM [Concomitant]
     Active Substance: FENTANYL
  17. LORAZEPAM. [Concomitant]
     Active Substance: LORAZEPAM
     Route: 048

REACTIONS (16)
  - Metastases to liver [Unknown]
  - Mucosal inflammation [Unknown]
  - Chest pain [Unknown]
  - Hypoxia [Unknown]
  - Pyrexia [Unknown]
  - Vomiting [Unknown]
  - Dyspnoea [Unknown]
  - Disease progression [Unknown]
  - Metastases to lung [Unknown]
  - White blood cell count increased [Unknown]
  - Stomatitis [Unknown]
  - Pneumonitis [Unknown]
  - Oral candidiasis [Unknown]
  - Metastases to pleura [Unknown]
  - Nausea [Unknown]
  - Pulmonary oedema [Unknown]
